FAERS Safety Report 7479889-8 (Version None)
Quarter: 2011Q2

REPORT INFORMATION
  Report Type: 
  Country: None (occurrence: None)
  Receive Date: 20110515
  Receipt Date: 20110511
  Transmission Date: 20111010
  Serious: Yes (Hospitalization)
  Sender: FDA-Public Use
  Company Number: US-BRISTOL-MYERS SQUIBB COMPANY-15736788

PATIENT
  Age: 80 Year
  Sex: Male
  Weight: 117 kg

DRUGS (1)
  1. YERVOY [Suspect]
     Indication: MALIGNANT MELANOMA
     Dosage: LAST DOSE:06APR11 CYCLE:21DAYS.INDUCTION THERAPY(CYC 1-4) 10MG/KG OVER 90 MIN ON DAY 1 COURSE:2
     Route: 042
     Dates: start: 20110316

REACTIONS (2)
  - MUSCULAR WEAKNESS [None]
  - LETHARGY [None]
